FAERS Safety Report 5475370-6 (Version None)
Quarter: 2007Q4

REPORT INFORMATION
  Report Type: 
  Country: None (occurrence: None)
  Receive Date: 20071003
  Receipt Date: 20070907
  Transmission Date: 20080405
  Serious: Yes (Hospitalization)
  Sender: FDA-Public Use
  Company Number: US-RB-008168-07

PATIENT
  Age: 35 Year
  Sex: Female

DRUGS (8)
  1. BUPRENOPHINE [Suspect]
     Indication: DRUG USE FOR UNKNOWN INDICATION
     Route: 065
  2. BUPRENOPHINE [Suspect]
     Route: 065
  3. BUPRENOPHINE [Suspect]
     Route: 065
  4. ESCITALOPRAM OXALATE [Suspect]
     Indication: ANXIETY
     Route: 065
  5. ESCITALOPRAM OXALATE [Suspect]
     Indication: DEPRESSION
     Route: 065
  6. ESCITALOPRAM OXALATE [Suspect]
     Route: 065
  7. ARIPIPRAZOLE [Suspect]
     Indication: ANXIETY
     Route: 065
  8. MIRTAZAPINE [Suspect]
     Indication: INSOMNIA
     Route: 065

REACTIONS (15)
  - ANXIETY [None]
  - BRUXISM [None]
  - FALL [None]
  - FLUSHING [None]
  - INCOHERENT [None]
  - INSOMNIA [None]
  - MUSCLE TIGHTNESS [None]
  - MUSCLE TWITCHING [None]
  - MYDRIASIS [None]
  - MYOCLONUS [None]
  - PARAESTHESIA [None]
  - RESTLESSNESS [None]
  - SEROTONIN SYNDROME [None]
  - STATUS EPILEPTICUS [None]
  - TREMOR [None]
